FAERS Safety Report 12969873 (Version 3)
Quarter: 2016Q4

REPORT INFORMATION
  Report Type: Spontaneous
  Country: PL (occurrence: PL)
  Receive Date: 20161123
  Receipt Date: 20161205
  Transmission Date: 20170207
  Serious: Yes (Hospitalization, Other)
  Sender: FDA-Public Use
  Company Number: PL-BAYER-2016-223491

PATIENT
  Age: 69 Year
  Sex: Female

DRUGS (11)
  1. RIVAROXABAN [Suspect]
     Active Substance: RIVAROXABAN
     Indication: DEEP VEIN THROMBOSIS
     Dosage: UNK
  2. HEPARIN [Concomitant]
     Active Substance: HEPARIN SODIUM
     Indication: DEEP VEIN THROMBOSIS
     Dosage: UNK
  3. LEVOFLOXACIN. [Concomitant]
     Active Substance: LEVOFLOXACIN
     Dosage: UNK
  4. ACETYLSALICYLIC ACID({=100 MG) [Suspect]
     Active Substance: ASPIRIN
     Indication: DEEP VEIN THROMBOSIS
     Dosage: UNK
  5. FIDAXOMICIN [Concomitant]
     Active Substance: FIDAXOMICIN
     Dosage: UNK
  6. VANCOMYCIN [Concomitant]
     Active Substance: VANCOMYCIN
     Dosage: UNK
  7. METRONIDAZOLE. [Concomitant]
     Active Substance: METRONIDAZOLE
     Dosage: 500 MG, TID
     Route: 048
  8. ANTIDEPRESSANTS [Concomitant]
     Active Substance: UNSPECIFIED INGREDIENT
  9. PROTON PUMP INHIBITORS [Suspect]
     Active Substance: UNSPECIFIED INGREDIENT
     Dosage: UNK, IN THE MORNING ON THE DAY OF PROCEDURE
  10. CIPROBAY [Suspect]
     Active Substance: CIPROFLOXACIN
     Indication: DEEP VEIN THROMBOSIS
     Dosage: UNK
  11. ANALGESICS [Concomitant]
     Active Substance: UNSPECIFIED INGREDIENT

REACTIONS (12)
  - Clostridium difficile colitis [Recovered/Resolved]
  - Asthenia [None]
  - Drug ineffective [None]
  - Drug interaction [None]
  - Anaemia [Recovering/Resolving]
  - Contusion [None]
  - Deep vein thrombosis [None]
  - Bone marrow failure [None]
  - Bone marrow toxicity [None]
  - Haematuria [None]
  - Haematoma [None]
  - Hypersensitivity [None]
